FAERS Safety Report 6688404-8 (Version None)
Quarter: 2010Q2

REPORT INFORMATION
  Report Type: 
  Country: None (occurrence: None)
  Receive Date: 20100420
  Receipt Date: 20100415
  Transmission Date: 20101027
  Serious: Yes (Hospitalization)
  Sender: FDA-Public Use
  Company Number: ES-ROCHE-697722

PATIENT
  Age: 42 Year
  Sex: Female

DRUGS (2)
  1. TAMIFLU [Suspect]
     Dosage: FREQUENCY: DAILY
     Route: 048
     Dates: start: 20091116, end: 20091120
  2. LEVOFLOXACIN [Suspect]
     Indication: PNEUMONIA
     Dosage: FREQUENCY: DAILY
     Route: 042
     Dates: start: 20091116, end: 20091120

REACTIONS (1)
  - HEPATOTOXICITY [None]
